FAERS Safety Report 13269905 (Version 3)
Quarter: 2017Q1

REPORT INFORMATION
  Report Type: Spontaneous
  Country: FR (occurrence: FR)
  Receive Date: 20170224
  Receipt Date: 20170324
  Transmission Date: 20170428
  Serious: Yes (Death, Hospitalization, Other)
  Sender: FDA-Public Use
  Company Number: FR-JNJFOC-20170221436

PATIENT
  Age: 87 Year
  Sex: Female
  Weight: 54 kg

DRUGS (2)
  1. OXYNORM [Suspect]
     Active Substance: OXYCODONE HYDROCHLORIDE
     Indication: PAIN
     Route: 048
     Dates: start: 20161121, end: 20161124
  2. DUROGESIC [Suspect]
     Active Substance: FENTANYL
     Indication: PAIN
     Route: 062
     Dates: start: 20161118, end: 20161121

REACTIONS (7)
  - Confusional state [Recovered/Resolved]
  - Overdose [Recovered/Resolved]
  - Cardiac arrest [Fatal]
  - Deep vein thrombosis [Fatal]
  - Miosis [Recovered/Resolved]
  - Bradycardia [Recovered/Resolved]
  - Bradypnoea [Recovered/Resolved]

NARRATIVE: CASE EVENT DATE: 20161119
